FAERS Safety Report 5489846-9 (Version None)
Quarter: 2007Q4

REPORT INFORMATION
  Report Type: 
  Country: None (occurrence: None)
  Receive Date: 20071018
  Receipt Date: 20071008
  Transmission Date: 20080405
  Serious: Yes (Other)
  Sender: FDA-Public Use
  Company Number: AU-PFIZER INC-2007078360

PATIENT
  Age: 70 Year
  Sex: Male

DRUGS (4)
  1. CADUET [Suspect]
     Indication: HYPERLIPIDAEMIA
     Dosage: TEXT:5MG/10MG
     Route: 048
     Dates: start: 20070601, end: 20070701
  2. CADUET [Suspect]
     Indication: HYPERTENSION
  3. LIPITOR [Suspect]
  4. NORVASC [Suspect]

REACTIONS (2)
  - ACTIVITIES OF DAILY LIVING IMPAIRED [None]
  - VITREOUS FLOATERS [None]
